FAERS Safety Report 12257308 (Version 1)
Quarter: 2016Q2

REPORT INFORMATION
  Report Type: Spontaneous
  Country: US (occurrence: US)
  Receive Date: 20160412
  Receipt Date: 20160412
  Transmission Date: 20160815
  Serious: Yes (Other)
  Sender: FDA-Public Use
  Company Number: US-009507513-1604USA006736

PATIENT
  Age: 12 Year
  Sex: Male

DRUGS (1)
  1. SINGULAIR [Suspect]
     Active Substance: MONTELUKAST SODIUM
     Indication: ASTHMA
     Dosage: 5 MG, QD (ONE 5 MG CHEWABLE TABLET DAILY)
     Route: 048
     Dates: start: 201505, end: 20160407

REACTIONS (5)
  - Abnormal behaviour [Unknown]
  - Panic attack [Unknown]
  - Personality change [Unknown]
  - Anxiety [Unknown]
  - Suicidal ideation [Unknown]

NARRATIVE: CASE EVENT DATE: 2016
